FAERS Safety Report 24183296 (Version 2)
Quarter: 2024Q3

REPORT INFORMATION
  Report Type: Other
  Country: CA (occurrence: CA)
  Receive Date: 20240807
  Receipt Date: 20240823
  Transmission Date: 20241017
  Serious: Yes (Death, Other)
  Sender: APOTEX
  Company Number: CA-APOTEX-2024AP009085

PATIENT
  Age: 80 Year
  Sex: Male

DRUGS (2)
  1. LENALIDOMIDE [Suspect]
     Active Substance: LENALIDOMIDE
     Indication: Plasma cell myeloma refractory
     Dosage: 20 MILLIGRAM, QD 21 DAYS ON 7 DAYS OFF FOR 28 DAY CYCLE
     Route: 048
     Dates: start: 20240722, end: 202407
  2. LENALIDOMIDE [Suspect]
     Active Substance: LENALIDOMIDE
     Indication: Follicular lymphoma refractory

REACTIONS (1)
  - Death [Fatal]

NARRATIVE: CASE EVENT DATE: 20240726
